FAERS Safety Report 4722561-5 (Version None)
Quarter: 2005Q3

REPORT INFORMATION
  Report Type: 
  Country: None (occurrence: None)
  Receive Date: 20050722
  Receipt Date: 20050503
  Transmission Date: 20060218
  Serious: Yes (Death)
  Sender: FDA-Public Use
  Company Number: GSK37996

PATIENT
  Age: 53 Year
  Sex: Male

DRUGS (1)
  1. TUMS [Suspect]
     Indication: DRUG USE FOR UNKNOWN INDICATION
     Route: 048

REACTIONS (19)
  - AORTIC ATHEROSCLEROSIS [None]
  - BLOOD CALCIUM INCREASED [None]
  - BRADYCARDIA [None]
  - CARDIAC ARREST [None]
  - CARDIOMYOPATHY [None]
  - CELL DEATH [None]
  - CHOLELITHIASIS [None]
  - CORONARY ARTERY ATHEROSCLEROSIS [None]
  - DILATATION ATRIAL [None]
  - DILATATION VENTRICULAR [None]
  - EMPHYSEMATOUS BULLA [None]
  - GASTRIC HAEMORRHAGE [None]
  - HEPATIC STEATOSIS [None]
  - MALAISE [None]
  - OVERDOSE [None]
  - PETECHIAE [None]
  - PULMONARY OEDEMA [None]
  - THROMBOSIS [None]
  - VENTRICULAR FIBRILLATION [None]
